FAERS Safety Report 19586710 (Version 3)
Quarter: 2021Q3

REPORT INFORMATION
  Report Type: Report from Study
  Country: US (occurrence: US)
  Receive Date: 20210720
  Receipt Date: 20210813
  Transmission Date: 20211014
  Serious: Yes (Hospitalization, Other)
  Sender: FDA-Public Use
  Company Number: US-GILEAD-2021-0541330

PATIENT
  Age: 82 Year
  Sex: Female

DRUGS (4)
  1. OFEV [Concomitant]
     Active Substance: NINTEDANIB
  2. AMBRISENTAN [Suspect]
     Active Substance: AMBRISENTAN
     Indication: PULMONARY HYPERTENSION
     Dosage: 10 MG, QD
     Route: 048
     Dates: start: 20181019
  3. UPTRAVI [Concomitant]
     Active Substance: SELEXIPAG
  4. ELIQUIS [Concomitant]
     Active Substance: APIXABAN

REACTIONS (6)
  - Ovarian cancer [Unknown]
  - Syncope [Unknown]
  - Oedema [Unknown]
  - Blood pressure abnormal [Unknown]
  - Fall [Unknown]
  - Localised infection [Unknown]

NARRATIVE: CASE EVENT DATE: 202106
